FAERS Safety Report 5068303-8 (Version None)
Quarter: 2006Q3

REPORT INFORMATION
  Report Type: 
  Country: None (occurrence: None)
  Receive Date: 20060802
  Receipt Date: 20050722
  Transmission Date: 20061208
  Serious: No
  Sender: FDA-Public Use
  Company Number: US-BRISTOL-MYERS SQUIBB COMPANY-13048210

PATIENT
  Age: 48 Year
  Sex: Female

DRUGS (3)
  1. COUMADIN [Suspect]
     Dosage: 4 MG-2 TABS DAILY, ALTERNATING WITH 3 TABS DAILY
     Route: 048
     Dates: start: 20050201
  2. IRON SUPPLEMENT [Concomitant]
  3. VITAMIN B COMPLEX CAP [Concomitant]

REACTIONS (2)
  - JOINT SWELLING [None]
  - OEDEMA PERIPHERAL [None]
